FAERS Safety Report 23440168 (Version 1)
Quarter: 2024Q1

REPORT INFORMATION
  Report Type: Report from Study
  Country: US (occurrence: US)
  Receive Date: 20240124
  Receipt Date: 20240124
  Transmission Date: 20240409
  Serious: Yes (Other)
  Sender: FDA-Public Use
  Company Number: US-ABBVIE-5598613

PATIENT
  Sex: Female

DRUGS (1)
  1. VENCLEXTA [Suspect]
     Active Substance: VENETOCLAX
     Indication: Diffuse large B-cell lymphoma
     Dosage: FORM STRENGTH: 100 MILLIGRAM?TAKE 1 TABLET BY MOUTH DAILY TAKE IMMEDIATELY FOLLOWING A MEAL WITH ...
     Route: 048

REACTIONS (2)
  - Seizure [Unknown]
  - Off label use [Unknown]
